FAERS Safety Report 6652791-7 (Version None)
Quarter: 2010Q1

REPORT INFORMATION
  Report Type: 
  Country: None (occurrence: None)
  Receive Date: 20100326
  Receipt Date: 20100315
  Transmission Date: 20100710
  Serious: Yes (Hospitalization, Other)
  Sender: FDA-Public Use
  Company Number: US-BAYER-201016798NA

PATIENT
  Sex: Female

DRUGS (1)
  1. TRASYLOL [Suspect]
     Indication: DRUG USE FOR UNKNOWN INDICATION
     Dates: start: 20051107

REACTIONS (9)
  - ANXIETY [None]
  - FEAR [None]
  - INJURY [None]
  - MULTI-ORGAN FAILURE [None]
  - PAIN [None]
  - RENAL FAILURE [None]
  - RENAL IMPAIRMENT [None]
  - RENAL INJURY [None]
  - STRESS [None]
